FAERS Safety Report 5885335-8 (Version None)
Quarter: 2008Q3

REPORT INFORMATION
  Report Type: 
  Country: None (occurrence: None)
  Receive Date: 20080916
  Receipt Date: 20080904
  Transmission Date: 20090109
  Serious: Yes (Other)
  Sender: FDA-Public Use
  Company Number: US-PFIZER INC-2008074826

PATIENT
  Sex: Male
  Weight: 100 kg

DRUGS (1)
  1. CHANTIX [Suspect]
     Indication: SMOKING CESSATION THERAPY
     Dates: start: 20071001, end: 20071001

REACTIONS (9)
  - ABNORMAL DREAMS [None]
  - AGGRESSION [None]
  - FACIAL BONES FRACTURE [None]
  - HYPOAESTHESIA [None]
  - NIGHTMARE [None]
  - SCAR [None]
  - SKULL FRACTURE [None]
  - STRESS [None]
  - VICTIM OF CRIME [None]
